FAERS Safety Report 25271707 (Version 1)
Quarter: 2025Q2

REPORT INFORMATION
  Report Type: Spontaneous
  Country: SE (occurrence: SE)
  Receive Date: 20250506
  Receipt Date: 20250506
  Transmission Date: 20250717
  Serious: Yes (Death, Congenital Anomaly, Other)
  Sender: SANDOZ
  Company Number: SE-EMA-DD-20180402-ishaevhp-112233

PATIENT
  Age: 86 Year
  Sex: Male

DRUGS (9)
  1. ENALAPRIL [Suspect]
     Active Substance: ENALAPRIL
     Indication: Cardiomyopathy
     Dosage: 5 MG, QD (LONG TERM)
     Route: 048
  2. ENALAPRIL [Suspect]
     Active Substance: ENALAPRIL
     Route: 048
  3. FUROSEMIDE [Suspect]
     Active Substance: FUROSEMIDE
     Indication: Product used for unknown indication
     Route: 065
  4. ACETAMINOPHEN [Suspect]
     Active Substance: ACETAMINOPHEN
     Indication: Product used for unknown indication
     Route: 065
  5. AMOXICILLIN\CLAVULANIC ACID [Interacting]
     Active Substance: AMOXICILLIN\CLAVULANIC ACID
     Indication: Respiratory tract infection bacterial
     Route: 048
  6. ASPIRIN [Interacting]
     Active Substance: ASPIRIN
     Indication: Cardiomyopathy
     Dosage: 300 MG (LONG TERM)
     Route: 048
  7. ASPIRIN [Interacting]
     Active Substance: ASPIRIN
     Route: 048
  8. ASPIRIN [Interacting]
     Active Substance: ASPIRIN
     Route: 048
  9. CIPROFLOXACIN [Interacting]
     Active Substance: CIPROFLOXACIN
     Indication: Respiratory tract infection bacterial
     Dosage: 1000 MG, QD
     Route: 048

REACTIONS (2)
  - Acute kidney injury [Fatal]
  - Drug interaction [Unknown]
